FAERS Safety Report 8371331-8 (Version None)
Quarter: 2012Q2

REPORT INFORMATION
  Report Type: 
  Country: None (occurrence: None)
  Receive Date: 20120518
  Receipt Date: 20120509
  Transmission Date: 20120825
  Serious: Yes (Life-Threatening, Hospitalization, Disabling, Other)
  Sender: FDA-Public Use
  Company Number: FR-JNJFOC-20120309151

PATIENT
  Age: 72 Year
  Sex: Female
  Weight: 56 kg

DRUGS (6)
  1. SPIROCTAZINE [Concomitant]
     Indication: HYPERTENSION
  2. REMICADE [Suspect]
     Dosage: FEW TIMES
     Route: 042
     Dates: start: 20090424
  3. REMICADE [Suspect]
     Dosage: 20TH INFUSION AT 6MG/KG
     Route: 042
     Dates: start: 20120131
  4. METHOTREXATE [Suspect]
     Indication: ANKYLOSING SPONDYLITIS
     Dosage: RECEIVED FOR  MORE THAN 3 YEARS
     Route: 048
     Dates: start: 20081219
  5. REMICADE [Suspect]
     Indication: ARTHRITIS
     Dosage: 8TH DOSE
     Route: 042
  6. TRANDATE [Concomitant]
     Indication: HYPERTENSION

REACTIONS (2)
  - METASTASES TO PERITONEUM [None]
  - ENDOMETRIAL CANCER METASTATIC [None]
